FAERS Safety Report 10944837 (Version 1)
Quarter: 2015Q1

REPORT INFORMATION
  Report Type: Spontaneous
  Country: IT (occurrence: None)
  Receive Date: 20150318
  Receipt Date: 20150318
  Transmission Date: 20150721
  Serious: Yes (Other)
  Sender: FDA-Public Use
  Company Number: IT-H14001-15-00423

PATIENT
  Age: 75 Year
  Sex: Female

DRUGS (10)
  1. AMIODARONE (AMIODARONE) (UNKNOWN) (AMIODARONE) [Suspect]
     Active Substance: AMIODARONE
     Indication: ATRIAL FIBRILLATION
     Dates: start: 20130915, end: 20140428
  2. MODURETIC (MODURETIC) (UNKNOWN) (HYDROCHLOROTHIAZIDE, AMILORIDE HYDROCHLORINE) [Concomitant]
  3. PANTOPRAZOLE [Concomitant]
     Active Substance: PANTOPRAZOLE SODIUM
  4. SODIUM CLODRONATE (CLODRONATE DISODIUM) [Concomitant]
  5. CONCOR *BISOPROLOL FUMARATE) [Concomitant]
  6. NIFEDIPINE. [Concomitant]
     Active Substance: NIFEDIPINE
  7. CALCIUM CARBONATE/CHOLECALCIFEROL (LEKOVIT CA) [Concomitant]
  8. TAREG (VALSARTAN) [Concomitant]
  9. METHYLPREDNISOLONE. [Concomitant]
     Active Substance: METHYLPREDNISOLONE
  10. DABIGATRAN ETEXILATE [Concomitant]
     Active Substance: DABIGATRAN ETEXILATE

REACTIONS (2)
  - Hypothyroidism [None]
  - Atrial fibrillation [None]

NARRATIVE: CASE EVENT DATE: 20131024
